FAERS Safety Report 4438697-2 (Version None)
Quarter: 2004Q3

REPORT INFORMATION
  Report Type: 
  Country: None (occurrence: None)
  Receive Date: 20040830
  Receipt Date: 20040830
  Transmission Date: 20050211
  Serious: Yes (Other)
  Sender: FDA-Public Use
  Company Number: None

PATIENT
  Age: 65 Year
  Sex: Female
  Weight: 65.7716 kg

DRUGS (2)
  1. DEFEROXAMINE 2 GM- ABBOTT [Suspect]
     Indication: APLASIA PURE RED CELL
     Dosage: 2 GM -SQ DAILY
     Route: 058
  2. DEFEROXAMINE 2 GM- ABBOTT [Suspect]
     Indication: IRON METABOLISM DISORDER
     Dosage: 2 GM -SQ DAILY
     Route: 058

REACTIONS (2)
  - INJECTION SITE URTICARIA [None]
  - PHARMACEUTICAL PRODUCT COMPLAINT [None]
